FAERS Safety Report 10027739 (Version 1)
Quarter: 2014Q1

REPORT INFORMATION
  Report Type: Spontaneous
  Country: GB (occurrence: GB)
  Receive Date: 20140321
  Receipt Date: 20140321
  Transmission Date: 20141002
  Serious: Yes (Life-Threatening, Hospitalization)
  Sender: FDA-Public Use
  Company Number: PHHY2014GB029748

PATIENT
  Age: 66 Year
  Sex: Female
  Weight: 58 kg

DRUGS (9)
  1. OLANZAPINE [Suspect]
     Indication: AGITATION
     Dosage: 5MG NIGHT
     Route: 048
     Dates: start: 20140203, end: 20140217
  2. OLANZAPINE [Suspect]
     Dosage: 2.5MG IN THE MORNING AND 5MG AT NIGHT.
     Route: 048
     Dates: start: 20140217, end: 20140224
  3. AMITRIPTYLIN [Concomitant]
  4. ATENOLOL [Concomitant]
  5. FOLIC ACID [Concomitant]
  6. LEVOTHYROXINE [Concomitant]
  7. SIMVASTATIN [Concomitant]
  8. ZOPICLONE [Concomitant]
  9. QUETIAPINE [Concomitant]

REACTIONS (6)
  - Sepsis [Recovered/Resolved]
  - Tachycardia [Unknown]
  - Neutropenia [Recovering/Resolving]
  - Thrombocytopenia [Recovering/Resolving]
  - Body temperature increased [Unknown]
  - Hypotension [Unknown]
